FAERS Safety Report 5819951-6 (Version None)
Quarter: 2008Q3

REPORT INFORMATION
  Report Type: 
  Country: None (occurrence: None)
  Receive Date: 20080721
  Receipt Date: 20080710
  Transmission Date: 20090109
  Serious: Yes (Life-Threatening, Hospitalization)
  Sender: FDA-Public Use
  Company Number: 2008AL002859

PATIENT
  Age: 67 Year
  Sex: Male
  Weight: 77.1115 kg

DRUGS (1)
  1. DIGOXIN [Suspect]
     Indication: ATRIAL FIBRILLATION
     Dosage: 0.25 MG, DAILY,  PO
     Route: 048

REACTIONS (8)
  - ANAEMIA [None]
  - BLOOD PRESSURE ABNORMAL [None]
  - DEHYDRATION [None]
  - HEART RATE DECREASED [None]
  - HYPOTENSION [None]
  - PULSE ABNORMAL [None]
  - RENAL DISORDER [None]
  - THROMBOSIS [None]
